FAERS Safety Report 6219466-X (Version None)
Quarter: 2009Q2

REPORT INFORMATION
  Report Type: 
  Country: None (occurrence: None)
  Receive Date: 20090609
  Receipt Date: 20090530
  Transmission Date: 20091009
  Serious: Yes (Other)
  Sender: FDA-Public Use
  Company Number: PHEH2009US05497

PATIENT

DRUGS (1)
  1. SANDOSTATIN [Suspect]

REACTIONS (2)
  - GALLBLADDER DISORDER [None]
  - GALLBLADDER OPERATION [None]
